FAERS Safety Report 24575295 (Version 1)
Quarter: 2024Q4

REPORT INFORMATION
  Report Type: Spontaneous
  Country: US (occurrence: None)
  Receive Date: 20241101
  Receipt Date: 20241101
  Transmission Date: 20250115
  Serious: Yes (Hospitalization)
  Sender: Public
  Company Number: None

PATIENT
  Age: 35 Year
  Sex: Male

DRUGS (2)
  1. DUPIXENT [Suspect]
     Active Substance: DUPILUMAB
     Indication: Dermatitis atopic
     Dosage: 300 MG EVERY 2 WEEKS ?
     Dates: start: 20220216
  2. MULTIVITAMIN [Concomitant]

REACTIONS (5)
  - Therapy interrupted [None]
  - Pyrexia [None]
  - Heart rate increased [None]
  - Food poisoning [None]
  - Cystitis [None]

NARRATIVE: CASE EVENT DATE: 20241021
